FAERS Safety Report 5801488-1 (Version None)
Quarter: 2008Q3

REPORT INFORMATION
  Report Type: 
  Country: None (occurrence: None)
  Receive Date: 20080707
  Receipt Date: 20080624
  Transmission Date: 20090109
  Serious: Yes (Death, Other)
  Sender: FDA-Public Use
  Company Number: US-ROCHE-572076

PATIENT
  Sex: Female

DRUGS (3)
  1. ROCEPHIN [Suspect]
     Indication: BRONCHITIS
     Dosage: DOSE REPORTED AS ONCE
     Route: 030
     Dates: start: 20080515
  2. ANTIBIOTIC NOS [Suspect]
     Indication: BRONCHITIS
     Route: 048
     Dates: start: 20080515
  3. MUCINEX [Suspect]
     Indication: BRONCHITIS
     Dosage: DRUG REPORTED AS MUCINEX EXTENDED RELEASE BI-LAYER TABLET PRODUCT.
     Route: 048
     Dates: start: 20080515

REACTIONS (5)
  - HYPERSENSITIVITY [None]
  - LIP SWELLING [None]
  - MUSCLE TIGHTNESS [None]
  - OEDEMA PERIPHERAL [None]
  - SWOLLEN TONGUE [None]
